FAERS Safety Report 13031474 (Version 1)
Quarter: 2016Q4

REPORT INFORMATION
  Report Type: Spontaneous
  Country: US (occurrence: US)
  Receive Date: 20161215
  Receipt Date: 20161215
  Transmission Date: 20170207
  Serious: Yes (Other)
  Sender: FDA-Public Use
  Company Number: US-ASTRAZENECA-2016SF30297

PATIENT
  Age: 89 Year
  Sex: Female
  Weight: 46.3 kg

DRUGS (5)
  1. LATANOPROST. [Concomitant]
     Active Substance: LATANOPROST
     Dosage: UNKNOWN
     Route: 065
  2. SPIRONOLACTONE. [Concomitant]
     Active Substance: SPIRONOLACTONE
     Dosage: UNKNOWN
     Route: 065
  3. BRILINTA [Suspect]
     Active Substance: TICAGRELOR
     Indication: MYOCARDIAL INFARCTION
     Route: 048
     Dates: start: 20160919
  4. ATORVASTATIN [Concomitant]
     Active Substance: ATORVASTATIN
     Route: 065
  5. QUINAPRIL. [Concomitant]
     Active Substance: QUINAPRIL
     Route: 065

REACTIONS (3)
  - Blindness unilateral [Not Recovered/Not Resolved]
  - Conjunctival haemorrhage [Unknown]
  - Retinal haemorrhage [Unknown]
